FAERS Safety Report 7345866-0 (Version None)
Quarter: 2011Q1

REPORT INFORMATION
  Report Type: 
  Country: None (occurrence: None)
  Receive Date: 20110311
  Receipt Date: 20110303
  Transmission Date: 20110831
  Serious: No
  Sender: FDA-Public Use
  Company Number: US-BIOGENIDEC-2011BI003132

PATIENT
  Sex: Male

DRUGS (1)
  1. TYSABRI [Suspect]
     Indication: MULTIPLE SCLEROSIS
     Route: 042
     Dates: start: 20101217

REACTIONS (12)
  - FEELING COLD [None]
  - RESPIRATORY TRACT CONGESTION [None]
  - PAIN IN EXTREMITY [None]
  - UPPER RESPIRATORY TRACT INFECTION [None]
  - SENSORY DISTURBANCE [None]
  - NASAL CONGESTION [None]
  - BLEPHAROSPASM [None]
  - HEADACHE [None]
  - BRONCHITIS [None]
  - HEMICEPHALALGIA [None]
  - BACK PAIN [None]
  - LARYNGITIS [None]
